FAERS Safety Report 7549354-8 (Version None)
Quarter: 2011Q2

REPORT INFORMATION
  Report Type: 
  Country: None (occurrence: None)
  Receive Date: 20110615
  Receipt Date: 20030425
  Transmission Date: 20111010
  Serious: Yes (Hospitalization, Other)
  Sender: FDA-Public Use
  Company Number: PHHO2003VE05407

PATIENT
  Sex: Female

DRUGS (2)
  1. ADALAT [Concomitant]
  2. DIOVAN HCT [Suspect]
     Indication: ESSENTIAL HYPERTENSION
     Route: 048

REACTIONS (2)
  - MUSCLE SPASMS [None]
  - INFARCTION [None]
